FAERS Safety Report 20827603 (Version 1)
Quarter: 2022Q2

REPORT INFORMATION
  Report Type: Spontaneous
  Country: US (occurrence: None)
  Receive Date: 20220513
  Receipt Date: 20220513
  Transmission Date: 20220720
  Serious: Yes (Hospitalization)
  Sender: FDA-Public Use
  Company Number: None

PATIENT
  Age: 55 Year
  Sex: Female

DRUGS (1)
  1. EVEROLIMUS [Suspect]
     Active Substance: EVEROLIMUS
     Dosage: FREQUENCY : DAILY;?
     Route: 048
     Dates: start: 202203

REACTIONS (6)
  - Hot flush [None]
  - Rectal haemorrhage [None]
  - Platelet count decreased [None]
  - Epistaxis [None]
  - Transient ischaemic attack [None]
  - Therapy interrupted [None]

NARRATIVE: CASE EVENT DATE: 20220502
